FAERS Safety Report 5904145-6 (Version None)
Quarter: 2008Q4

REPORT INFORMATION
  Report Type: 
  Country: None (occurrence: None)
  Receive Date: 20081001
  Receipt Date: 20080919
  Transmission Date: 20090506
  Serious: Yes (Hospitalization, Other)
  Sender: FDA-Public Use
  Company Number: US-RANBAXY-2008US-18066

PATIENT

DRUGS (1)
  1. CLINDAMYCIN HYDROCHLORIDE [Suspect]
     Indication: ENDODONTIC PROCEDURE
     Dosage: UNK UNK, QID
     Route: 048
     Dates: start: 20080912, end: 20080914

REACTIONS (1)
  - CHEST PAIN [None]
